FAERS Safety Report 8548611 (Version 2)
Quarter: 2012Q4

REPORT INFORMATION
  Report Type: 
  Country: US (occurrence: US)
  Receive Date: 20120507
  Receipt Date: 20120907
  Transmission Date: 20130627
  Serious: Yes (Hospitalization, Other)
  Sender: FDA-Public Use
  Company Number: US-BAYER-2012-043036

PATIENT
  Age: 40 Year
  Sex: Female
  Weight: 66 kg

DRUGS (3)
  1. YAZ [Suspect]
     Indication: CONTRACEPTION
     Dosage: UNK
     Dates: start: 20080830, end: 200909
  2. LEXAPRO [Concomitant]
     Indication: ANXIETY
     Dosage: UNK
     Dates: start: 2008
  3. LEXAPRO [Concomitant]
     Indication: DEPRESSION

REACTIONS (9)
  - Deep vein thrombosis [None]
  - Deep vein thrombosis [None]
  - Varicose vein [None]
  - Thrombophlebitis superficial [None]
  - Injury [None]
  - Pain [None]
  - Pain in extremity [None]
  - Burning sensation [None]
  - Oedema peripheral [None]
